FAERS Safety Report 26069781 (Version 1)
Quarter: 2025Q4

REPORT INFORMATION
  Report Type: Report from Study
  Country: KR (occurrence: KR)
  Receive Date: 20251120
  Receipt Date: 20251120
  Transmission Date: 20260117
  Serious: Yes (Hospitalization)
  Sender: ABBVIE
  Company Number: KR-ABBVIE-6552935

PATIENT
  Age: 63 Year
  Sex: Female
  Weight: 50 kg

DRUGS (8)
  1. RINVOQ [Suspect]
     Active Substance: UPADACITINIB
     Indication: Rheumatoid arthritis
     Dosage: MODIFIED-RELEASE FILM-COATED TABLET, FORM STRENGTH 1 TABLET
     Route: 048
     Dates: start: 20240925
  2. TEGOPRAZAN [Concomitant]
     Active Substance: TEGOPRAZAN
     Indication: Prophylaxis
     Dosage: STRENGTH: 50 MG
     Route: 048
     Dates: start: 20240925
  3. SHINGRIX [Concomitant]
     Active Substance: RECOMBINANT VARICELLA ZOSTER VIRUS (VZV) GLYCOPROTEIN E
     Indication: Antiviral prophylaxis
     Route: 030
     Dates: start: 20250205, end: 20250205
  4. D3 base [Concomitant]
     Indication: Vitamin supplementation
     Dosage: 100,000 IU
     Route: 030
     Dates: start: 20241120, end: 20241120
  5. Sinil folic acid [Concomitant]
     Indication: Vitamin supplementation
     Dosage: STRENGTH: 1MG
     Route: 048
     Dates: start: 20240925, end: 20250205
  6. RHEUMATREX [Concomitant]
     Active Substance: METHOTREXATE SODIUM
     Indication: Rheumatoid arthritis
     Dates: start: 20240110, end: 20241119
  7. LYRICA [Concomitant]
     Active Substance: PREGABALIN
     Indication: Pain prophylaxis
     Dosage: STRENGTH: 75MG
     Route: 048
     Dates: start: 20240925, end: 20250108
  8. ATORVASTATIN CALCIUM\EZETIMIBE [Concomitant]
     Active Substance: ATORVASTATIN CALCIUM\EZETIMIBE
     Indication: Dyslipidaemia
     Dosage: STRENGTH: 10/10MG
     Route: 048
     Dates: start: 20241023

REACTIONS (1)
  - Cholelithiasis [Recovered/Resolved]

NARRATIVE: CASE EVENT DATE: 20250301
